FAERS Safety Report 10221979 (Version 1)
Quarter: 2014Q2

REPORT INFORMATION
  Report Type: Spontaneous
  Country: FR (occurrence: FR)
  Receive Date: 20140606
  Receipt Date: 20140606
  Transmission Date: 20141212
  Serious: Yes (Life-Threatening, Hospitalization, Other)
  Sender: FDA-Public Use
  Company Number: FR-ASTRAZENECA-2014SE39158

PATIENT
  Age: 19429 Day
  Sex: Male
  Weight: 79 kg

DRUGS (10)
  1. XEROQUEL [Suspect]
     Indication: DEPRESSION
     Route: 048
     Dates: start: 20140424, end: 20140428
  2. MARSILID [Suspect]
     Route: 048
     Dates: end: 201309
  3. MARSILID [Suspect]
     Route: 048
     Dates: start: 201404, end: 20140428
  4. DEPAKOTE [Concomitant]
     Route: 048
  5. SERESTA [Concomitant]
     Route: 048
  6. NOCTAMIDE [Concomitant]
     Route: 048
  7. PRAVASTATINE [Concomitant]
     Route: 048
  8. HEPTAMYL [Concomitant]
     Dosage: 15 DROPS THREE TIMES A DAY
     Route: 048
  9. DAFALGAN [Concomitant]
     Route: 048
  10. EUPANTOL [Concomitant]
     Route: 048

REACTIONS (10)
  - Leukocytosis [Unknown]
  - Neuroleptic malignant syndrome [Recovering/Resolving]
  - Thrombocytopenia [Recovered/Resolved]
  - Malaise [None]
  - Orthostatic hypotension [None]
  - Fall [None]
  - Joint injury [None]
  - Rhabdomyolysis [None]
  - Renal failure [None]
  - Dysarthria [None]
